FAERS Safety Report 5587859-X (Version None)
Quarter: 2007Q4

REPORT INFORMATION
  Report Type: 
  Country: None (occurrence: None)
  Receive Date: 20071211
  Receipt Date: 20071002
  Transmission Date: 20080405
  Serious: No
  Sender: FDA-Public Use
  Company Number: 002#2#2007-00208

PATIENT
  Age: 64 Year
  Sex: Female
  Weight: 58.0604 kg

DRUGS (4)
  1. NEUPRO [Suspect]
     Indication: PARKINSON'S DISEASE
     Dosage: MG/24H,D,TRANSDERMAL
     Route: 062
     Dates: start: 20070901
  2. FOSAMAX [Concomitant]
  3. INDURAL [Concomitant]
  4. ELAVIL [Concomitant]

REACTIONS (2)
  - INSOMNIA [None]
  - TREMOR [None]
